FAERS Safety Report 8020279-7 (Version None)
Quarter: 2011Q4

REPORT INFORMATION
  Report Type: 
  Country: None (occurrence: None)
  Receive Date: 20111228
  Receipt Date: 20111214
  Transmission Date: 20120403
  Serious: Yes (Other)
  Sender: FDA-Public Use
  Company Number: AUR-APL-2011-06238

PATIENT
  Age: 77 Year
  Sex: Male

DRUGS (10)
  1. SUNITINIB MALATE; PLACEBO (SUNITINIB MALATE) [Suspect]
     Indication: HEPATIC NEOPLASM MALIGNANT
     Dosage: 37.5 MG (37.5 MG, 1 IN 1 D)
  2. LANSOPRAZOLE [Concomitant]
  3. AMLODIPINE BESYLATE [Concomitant]
  4. METFORMIN HCL [Suspect]
     Indication: PRODUCT USED FOR UNKNOWN INDICATION
     Dosage: 3 DOSAGE FORMS (1 DOSAGE FORMS, 3 IN 1 D)
  5. TAMSULOSIN HCL [Concomitant]
  6. PULMICORT [Concomitant]
  7. VASTAREL (TRIMETAZIDINE HYDROCHLORIDE) [Concomitant]
  8. VOLTAREN [Concomitant]
  9. LAMALINE (LAMALINE /00764901/) [Concomitant]
  10. DOXORUBICIN HYDROCHLORIDE [Suspect]
     Indication: HEPATIC NEOPLASM MALIGNANT

REACTIONS (4)
  - GENERAL PHYSICAL CONDITION ABNORMAL [None]
  - NEOPLASM PROGRESSION [None]
  - HEPATIC NEOPLASM MALIGNANT [None]
  - DECREASED APPETITE [None]
